FAERS Safety Report 15455620 (Version 1)
Quarter: 2018Q4

REPORT INFORMATION
  Report Type: Report from Study
  Country: None (occurrence: AU)
  Receive Date: 20181002
  Receipt Date: 20181002
  Transmission Date: 20190204
  Serious: Yes (Hospitalization, Other)
  Sender: FDA-Public Use
  Company Number: AU-ABBVIE-18S-008-2473075-00

PATIENT
  Age: 67 Year
  Sex: Female

DRUGS (1)
  1. DUODOPA [Suspect]
     Active Substance: CARBIDOPA\LEVODOPA
     Indication: PARKINSON^S DISEASE
     Dosage: 100ML GEL CASSETTE
     Route: 050
     Dates: start: 20140505

REACTIONS (5)
  - Wound complication [Unknown]
  - Internal haemorrhage [Unknown]
  - Hospitalisation [Recovered/Resolved]
  - Stoma site infection [Unknown]
  - Device dislocation [Unknown]

NARRATIVE: CASE EVENT DATE: 20180831
